FAERS Safety Report 7952490-5 (Version None)
Quarter: 2011Q4

REPORT INFORMATION
  Report Type: 
  Country: None (occurrence: None)
  Receive Date: 20111201
  Receipt Date: 20111123
  Transmission Date: 20120403
  Serious: Yes (Death)
  Sender: FDA-Public Use
  Company Number: US-CELGENEUS-163-21880-11093648

PATIENT
  Sex: Male

DRUGS (15)
  1. REVLIMID [Suspect]
     Indication: MYELODYSPLASTIC SYNDROME
     Dosage: 10 MILLIGRAM
     Route: 048
     Dates: start: 20110818, end: 20110901
  2. ASPIRIN [Concomitant]
     Route: 065
  3. GLIPIZIDE [Concomitant]
     Route: 065
  4. LORAZEPAM [Concomitant]
     Route: 065
  5. SIMVASTATIN [Concomitant]
     Route: 065
  6. POTASSIUM ACETATE [Concomitant]
     Route: 065
  7. GUAIFENESIN [Concomitant]
     Route: 065
  8. ZOLPIDEM [Concomitant]
     Route: 065
  9. METOPROLOL [Concomitant]
     Route: 065
  10. GABAPENTIN [Concomitant]
     Route: 065
  11. METFORMIN HCL [Concomitant]
     Route: 065
  12. MAG OXIDE [Concomitant]
     Route: 065
  13. PROTONIX [Concomitant]
     Route: 065
  14. LASIX [Concomitant]
     Route: 065
  15. OXYCODONE HCL [Concomitant]
     Route: 065

REACTIONS (2)
  - MYELODYSPLASTIC SYNDROME [None]
  - SEPSIS [None]
